FAERS Safety Report 25596119 (Version 1)
Quarter: 2025Q3

REPORT INFORMATION
  Report Type: Spontaneous
  Country: US (occurrence: US)
  Receive Date: 20250723
  Receipt Date: 20250723
  Transmission Date: 20251020
  Serious: No
  Sender: SANOFI AVENTIS
  Company Number: US-SA-2025SA210531

PATIENT
  Age: 1 Year
  Sex: Male

DRUGS (7)
  1. DUPIXENT [Suspect]
     Active Substance: DUPILUMAB
     Indication: Dermatitis atopic
     Dosage: 200 MG, Q4W
     Route: 058
     Dates: start: 20250402
  2. CLOBETASOL [Concomitant]
     Active Substance: CLOBETASOL
  3. EUCRISA [Concomitant]
     Active Substance: CRISABOROLE
  4. FLUTICASONE [Concomitant]
     Active Substance: FLUTICASONE
  5. MUPIROCIN [Concomitant]
     Active Substance: MUPIROCIN
  6. TRIAMCINOLONE [Concomitant]
     Active Substance: TRIAMCINOLONE
  7. VAQTA [Concomitant]
     Active Substance: HEPATITIS A VIRUS STRAIN CR 326F ANTIGEN (FORMALDEHYDE INACTIVATED)

REACTIONS (1)
  - Eye irritation [Unknown]

NARRATIVE: CASE EVENT DATE: 20250101
